FAERS Safety Report 6292594-9 (Version None)
Quarter: 2009Q3

REPORT INFORMATION
  Report Type: 
  Country: None (occurrence: None)
  Receive Date: 20090729
  Receipt Date: 20090720
  Transmission Date: 20100115
  Serious: Yes (Hospitalization, Disabling, Other)
  Sender: FDA-Public Use
  Company Number: ADR10862009

PATIENT
  Age: 85 Year
  Sex: Male

DRUGS (3)
  1. AMLODIPINE [Suspect]
     Indication: BLOOD PRESSURE INCREASED
     Dosage: ORAL
     Route: 048
     Dates: start: 20081210, end: 20090105
  2. FELODIPINE [Concomitant]
  3. LISINOPRIL [Concomitant]

REACTIONS (3)
  - PEMPHIGOID [None]
  - RASH GENERALISED [None]
  - RASH PRURITIC [None]
